FAERS Safety Report 9230684 (Version 1)
Quarter: 2013Q2

REPORT INFORMATION
  Report Type: Spontaneous
  Country: US (occurrence: US)
  Receive Date: 20130415
  Receipt Date: 20130415
  Transmission Date: 20140414
  Serious: Yes (Hospitalization, Other)
  Sender: FDA-Public Use
  Company Number: US-ASTRAZENECA-2013SE22542

PATIENT
  Age: 80 Year
  Sex: Female
  Weight: 96.2 kg

DRUGS (22)
  1. NEXIUM [Suspect]
     Indication: GASTROOESOPHAGEAL REFLUX DISEASE
     Route: 048
     Dates: end: 201209
  2. OMEPRAZOLE [Suspect]
     Indication: GASTROOESOPHAGEAL REFLUX DISEASE
     Route: 048
  3. LISINOPRIL [Suspect]
     Indication: BLOOD PRESSURE ABNORMAL
     Route: 048
  4. FOSOMAX [Suspect]
     Route: 065
  5. ALPRAZOLAM [Concomitant]
  6. CELEBREX [Concomitant]
     Indication: ARTHRITIS
  7. CYMBALTA [Concomitant]
     Indication: OSTEOPOROSIS
  8. FUROSEMIDE [Concomitant]
     Indication: RENAL DISORDER
  9. METFORMIN [Concomitant]
     Indication: DIABETES MELLITUS
  10. PROPRANOLOL [Concomitant]
     Indication: MIGRAINE
  11. OXYBUTIN [Concomitant]
  12. POTTASSIUM CHLORIDE [Concomitant]
  13. SIMVASTATIN [Concomitant]
  14. ZETIA [Concomitant]
  15. RECLAST [Concomitant]
     Indication: BONE DISORDER
     Dosage: YEAR
  16. PRO AIR [Concomitant]
     Indication: DYSPNOEA
     Dosage: HS
  17. CALCIUM D3 [Concomitant]
     Dosage: DAILY
  18. FISH OIL [Concomitant]
  19. ESTER C [Concomitant]
  20. SUPER B [Concomitant]
     Dosage: DAILY
  21. IRON [Concomitant]
  22. MONOLAURIN [Concomitant]
     Indication: IMMUNE SYSTEM DISORDER

REACTIONS (16)
  - Femur fracture [Unknown]
  - Wrist fracture [Unknown]
  - Joint dislocation [Unknown]
  - Humerus fracture [Unknown]
  - Fall [Unknown]
  - Skull fractured base [Unknown]
  - Vomiting [Unknown]
  - Feeling abnormal [Unknown]
  - Fracture [Unknown]
  - Hypertension [Unknown]
  - Osteoporosis [Unknown]
  - Diabetes mellitus [Unknown]
  - Bone development abnormal [Unknown]
  - Staphylococcal infection [Unknown]
  - Drug dose omission [Unknown]
  - Drug ineffective [Unknown]
